FAERS Safety Report 17063170 (Version 1)
Quarter: 2019Q4

REPORT INFORMATION
  Report Type: Spontaneous
  Country: PL (occurrence: PL)
  Receive Date: 20191122
  Receipt Date: 20191122
  Transmission Date: 20200122
  Serious: Yes (Life-Threatening, Other)
  Sender: FDA-Public Use
  Company Number: PL-ACCORD-161914

PATIENT
  Age: 80 Year
  Sex: Male

DRUGS (5)
  1. PACLITAXEL/PACLITAXEL LIPOSOME [Suspect]
     Active Substance: PACLITAXEL
     Indication: NEOPLASM RECURRENCE
     Dosage: WEEKLY REGIMEN
  2. PACLITAXEL/PACLITAXEL LIPOSOME [Suspect]
     Active Substance: PACLITAXEL
     Indication: UNDIFFERENTIATED NASOPHARYNGEAL CARCINOMA
     Dosage: WEEKLY REGIMEN
  3. CARBOPLATIN. [Suspect]
     Active Substance: CARBOPLATIN
     Indication: UNDIFFERENTIATED NASOPHARYNGEAL CARCINOMA
  4. ENTECAVIR. [Concomitant]
     Active Substance: ENTECAVIR
     Indication: CHRONIC HEPATITIS B
  5. CARBOPLATIN. [Suspect]
     Active Substance: CARBOPLATIN
     Indication: NEOPLASM RECURRENCE

REACTIONS (3)
  - Neutropenia [Unknown]
  - Skin toxicity [Unknown]
  - Off label use [Unknown]
